FAERS Safety Report 8234669-0 (Version None)
Quarter: 2012Q1

REPORT INFORMATION
  Report Type: 
  Country: None (occurrence: None)
  Receive Date: 20120326
  Receipt Date: 20120319
  Transmission Date: 20120608
  Serious: No
  Sender: FDA-Public Use
  Company Number: US-PFIZER INC-2012072321

PATIENT
  Sex: Female

DRUGS (2)
  1. SYNTHROID [Suspect]
     Dosage: UNK
  2. CYTOMEL [Suspect]
     Dosage: 5 UG, UNK

REACTIONS (3)
  - MUSCULAR WEAKNESS [None]
  - HYPERSENSITIVITY [None]
  - ABDOMINAL DISCOMFORT [None]
